FAERS Safety Report 5986134-9 (Version None)
Quarter: 2008Q4

REPORT INFORMATION
  Report Type: 
  Country: None (occurrence: None)
  Receive Date: 20081205
  Receipt Date: 20081205
  Transmission Date: 20090506
  Serious: No
  Sender: FDA-Public Use
  Company Number: None

PATIENT
  Age: 56 Year
  Sex: Male
  Weight: 96.1626 kg

DRUGS (1)
  1. BENAZEPRIL HYDROCHLORIDE [Suspect]
     Indication: HYPERTENSION
     Dosage: 10MG  DAILY PO
     Route: 048
     Dates: start: 20081015, end: 20081129

REACTIONS (6)
  - DISORIENTATION [None]
  - DIZZINESS [None]
  - DRUG EFFECT DECREASED [None]
  - FATIGUE [None]
  - FEELING ABNORMAL [None]
  - PALPITATIONS [None]
